FAERS Safety Report 10128732 (Version 1)
Quarter: 2014Q2

REPORT INFORMATION
  Report Type: Spontaneous
  Country: US (occurrence: None)
  Receive Date: 20140424
  Receipt Date: 20140424
  Transmission Date: 20141212
  Serious: Yes (Hospitalization)
  Sender: FDA-Public Use
  Company Number: None

PATIENT
  Age: 13 Year
  Sex: Male

DRUGS (21)
  1. CLINDAMYCIN [Suspect]
  2. METRONDIAZOLE 500 MG [Suspect]
  3. TYLENOL [Concomitant]
  4. BENADRYL [Concomitant]
  5. SOLUMEDROL [Concomitant]
  6. ACYCLOVIR [Concomitant]
  7. CEFEPIME [Concomitant]
  8. CLINDAMYCIN [Concomitant]
  9. ALBUTEROL [Concomitant]
  10. CYCLOSPORINE [Concomitant]
  11. MARINOL [Concomitant]
  12. ZOFRAN [Concomitant]
  13. LPN [Concomitant]
  14. SCOLOPAMINE [Concomitant]
  15. LOVENOX [Concomitant]
  16. CHLOROHEXIDINE [Concomitant]
  17. NEUPOGEN [Concomitant]
  18. PROTONIX [Concomitant]
  19. MICAFUNGIN [Concomitant]
  20. MYCOPHENOLATE [Concomitant]
  21. URSODIOL [Suspect]

REACTIONS (3)
  - Blister [None]
  - Pain in extremity [None]
  - Skin exfoliation [None]
